FAERS Safety Report 4993704-3 (Version None)
Quarter: 2006Q2

REPORT INFORMATION
  Report Type: 
  Country: None (occurrence: None)
  Receive Date: 20060505
  Receipt Date: 20060406
  Transmission Date: 20061013
  Serious: Yes (Hospitalization)
  Sender: FDA-Public Use
  Company Number: US-MERCK-0604USA00914

PATIENT
  Age: 65 Year
  Sex: Female
  Weight: 69 kg

DRUGS (13)
  1. VIOXX [Suspect]
     Indication: BACK PAIN
     Route: 048
     Dates: start: 20030101
  2. VIOXX [Suspect]
     Route: 048
     Dates: start: 20040210, end: 20040405
  3. NORVASC [Concomitant]
     Route: 065
  4. AMITRIPTYLIN [Concomitant]
     Route: 065
  5. WELLBUTRIN [Concomitant]
     Route: 065
  6. ZITHROMAX [Concomitant]
     Route: 065
  7. BACLOFEN [Concomitant]
     Route: 065
  8. ADVAIR DISKUS 100/50 [Concomitant]
     Route: 065
  9. BUPROPION HYDROCHLORIDE [Concomitant]
     Route: 065
  10. NITROQUICK [Concomitant]
     Route: 065
  11. OXYCONTIN [Concomitant]
     Route: 065
  12. LIPITOR [Concomitant]
     Route: 065
  13. LORATADINE [Concomitant]
     Route: 065

REACTIONS (12)
  - ABDOMINAL PAIN UPPER [None]
  - ARTHRALGIA [None]
  - BACK PAIN [None]
  - CEREBROVASCULAR DISORDER [None]
  - COORDINATION ABNORMAL [None]
  - GALLBLADDER DISORDER [None]
  - GASTROOESOPHAGEAL REFLUX DISEASE [None]
  - INTERVERTEBRAL DISC PROTRUSION [None]
  - OSTEOARTHRITIS [None]
  - PAIN IN EXTREMITY [None]
  - POST LAMINECTOMY SYNDROME [None]
  - TRANSIENT ISCHAEMIC ATTACK [None]
